FAERS Safety Report 5255243-4 (Version None)
Quarter: 2007Q1

REPORT INFORMATION
  Report Type: 
  Country: None (occurrence: None)
  Receive Date: 20070305
  Receipt Date: 20070221
  Transmission Date: 20070707
  Serious: Yes (Hospitalization)
  Sender: FDA-Public Use
  Company Number: GB-AVENTIS-200711786GDDC

PATIENT
  Sex: Female
  Weight: 110 kg

DRUGS (15)
  1. LANTUS [Suspect]
     Route: 058
     Dates: start: 20061101, end: 20070201
  2. PREDNISOLONE [Concomitant]
  3. GABAPENTIN [Concomitant]
  4. RABEPRAZOLE SODIUM [Concomitant]
  5. IRBESARTAN [Concomitant]
  6. AMLODIPINE [Concomitant]
  7. BUMETANIDE [Concomitant]
  8. ALENDRONIC ACID [Concomitant]
     Dosage: DOSE QUANTITY: 1
     Route: 048
  9. ASPIRIN [Concomitant]
  10. METFORMIN HCL [Concomitant]
  11. AMITRIPTYLINE HCL [Concomitant]
  12. ATORVASTATIN [Concomitant]
  13. ZOPICLONE [Concomitant]
  14. CO-DYDRAMOL [Concomitant]
     Dosage: DOSE: 10/500
  15. APIDRA [Concomitant]
     Route: 058

REACTIONS (2)
  - PHARMACEUTICAL PRODUCT COMPLAINT [None]
  - TACHYCARDIA [None]
